FAERS Safety Report 10082784 (Version 2)
Quarter: 2014Q2

REPORT INFORMATION
  Report Type: Spontaneous
  Country: US (occurrence: US)
  Receive Date: 20140416
  Receipt Date: 20140616
  Transmission Date: 20141212
  Serious: Yes (Other)
  Sender: FDA-Public Use
  Company Number: US-RB-066002-14

PATIENT
  Age: 0 Year
  Sex: Female

DRUGS (15)
  1. SUBOXONE FILM [Suspect]
     Dosage: SUBOXONE FILM
     Route: 064
     Dates: start: 201308, end: 20140121
  2. SUBOXONE FILM [Suspect]
     Dosage: SUBOXONE FILM
     Route: 064
     Dates: start: 20140203, end: 20140320
  3. SUBOXONE FILM [Suspect]
     Indication: DRUG DEPENDENCE
     Dosage: SUBOXONE FILM
     Route: 063
     Dates: start: 20140320
  4. BUPRENORPHINE GENERIC [Suspect]
     Indication: DRUG DEPENDENCE
     Dosage: MOTHER USED 2 TABLETS DAILY
     Route: 064
     Dates: start: 20140122, end: 20140202
  5. OPIATES [Suspect]
     Indication: PRODUCT USED FOR UNKNOWN INDICATION
     Route: 064
     Dates: start: 201308
  6. SPIRONOLACTONE [Concomitant]
     Indication: PRODUCT USED FOR UNKNOWN INDICATION
     Dosage: MATERNAL DOSING DETAILS UNKNOWN
     Route: 064
     Dates: end: 20140320
  7. SPIRONOLACTONE [Concomitant]
     Dosage: MATERNAL DOSING DETAILS UNKNOWN
     Route: 063
     Dates: start: 20140320
  8. ATENOLOL [Concomitant]
     Dosage: MATERNAL DOSING DETAILS UNKNOWN
     Route: 064
     Dates: end: 20140320
  9. ATENOLOL [Concomitant]
     Indication: PRODUCT USED FOR UNKNOWN INDICATION
     Dosage: MATERNAL DOSING DETAILS UNKNOWN
     Route: 063
     Dates: start: 20140320
  10. EFFEXOR [Concomitant]
     Dosage: MATERNAL DOSING DETAILS UNKNOWN
     Route: 064
     Dates: end: 20140320
  11. EFFEXOR [Concomitant]
     Indication: PRODUCT USED FOR UNKNOWN INDICATION
     Dosage: MATERNAL DOSING DETAILS UNKNOWN
     Route: 063
     Dates: start: 20140320
  12. PRILOSEC [Concomitant]
     Dosage: MATERNAL DOSING DETAILS UNKNOWN
     Route: 064
     Dates: end: 20140320
  13. PRILOSEC [Concomitant]
     Indication: PRODUCT USED FOR UNKNOWN INDICATION
     Dosage: MATERNAL DOSING DETAILS UNKNOWN
     Route: 063
     Dates: start: 20140320
  14. BROMOCRIPTINE [Concomitant]
     Indication: PRODUCT USED FOR UNKNOWN INDICATION
     Dosage: DOSING DETAILS UNKNOWN
     Route: 064
  15. METFORMIN [Concomitant]
     Indication: PRODUCT USED FOR UNKNOWN INDICATION
     Dosage: DOSING DETAILS UNKNOWN
     Route: 064

REACTIONS (5)
  - Foetal exposure during pregnancy [Recovered/Resolved]
  - Premature baby [Recovered/Resolved]
  - Low birth weight baby [Recovered/Resolved]
  - Exposure during breast feeding [Not Recovered/Not Resolved]
  - Drug withdrawal syndrome neonatal [Unknown]
